FAERS Safety Report 15250309 (Version 2)
Quarter: 2018Q3

REPORT INFORMATION
  Report Type: Report from Study
  Country: CO (occurrence: CO)
  Receive Date: 20180807
  Receipt Date: 20180808
  Transmission Date: 20181010
  Serious: Yes (Death, Other)
  Sender: FDA-Public Use
  Company Number: CO-REGENERON PHARMACEUTICALS, INC.-2018-32935

PATIENT

DRUGS (1)
  1. EYLEA [Suspect]
     Active Substance: AFLIBERCEPT
     Indication: RETINAL VEIN OCCLUSION
     Dosage: 2 MG PER MONTH UNTIL IMPROVEMENT IN SIGHT, TOTAL NUMBER OF DOSES UNKNOWN
     Dates: start: 20151210

REACTIONS (2)
  - Death [Fatal]
  - Cranial operation [Unknown]

NARRATIVE: CASE EVENT DATE: 20180714
